FAERS Safety Report 5604588-4 (Version None)
Quarter: 2008Q1

REPORT INFORMATION
  Report Type: 
  Country: None (occurrence: None)
  Receive Date: 20080128
  Receipt Date: 20080124
  Transmission Date: 20080703
  Serious: Yes (Life-Threatening)
  Sender: FDA-Public Use
  Company Number: JP-ASTRAZENECA-2007AP06542

PATIENT
  Age: 10175 Day
  Sex: Male
  Weight: 60 kg

DRUGS (12)
  1. DIPRIVAN [Suspect]
     Indication: INDUCTION OF ANAESTHESIA
     Route: 042
     Dates: start: 20040423, end: 20040423
  2. XYLOCAINE W/ EPINEPHRINE [Suspect]
     Indication: LOCAL ANAESTHESIA
     Route: 061
     Dates: start: 20040423, end: 20040423
  3. MUSCULAX [Suspect]
     Indication: HYPOTONIA
     Route: 042
     Dates: start: 20040423, end: 20040423
  4. BREVIBLOC [Suspect]
     Indication: INDUCTION OF ANAESTHESIA
     Route: 042
     Dates: start: 20040423, end: 20040423
  5. SEVOFLURANE [Suspect]
     Indication: INDUCTION AND MAINTENANCE OF ANAESTHESIA
     Route: 055
     Dates: start: 20040423, end: 20040423
  6. OXYGEN [Concomitant]
     Indication: INDUCTION OF ANAESTHESIA
     Route: 055
     Dates: start: 20040423, end: 20040423
  7. LAUGHING GAS [Concomitant]
     Indication: INDUCTION OF ANAESTHESIA
     Route: 055
     Dates: start: 20040423, end: 20040423
  8. ATROPINE SULFATE [Concomitant]
     Indication: RESUSCITATION
     Route: 042
     Dates: start: 20040423, end: 20040423
  9. PROTERNOL [Concomitant]
     Indication: RESUSCITATION
     Route: 042
     Dates: start: 20040423, end: 20040423
  10. BOSMIN [Concomitant]
     Indication: RESUSCITATION
     Route: 042
     Dates: start: 20040423, end: 20040423
  11. MANNITOL [Concomitant]
     Indication: BRAIN OEDEMA
     Route: 041
     Dates: start: 20040423, end: 20040423
  12. NITROGLYCERIN [Concomitant]
     Indication: CARDIOPLEGIA
     Route: 041
     Dates: start: 20040423, end: 20040423

REACTIONS (2)
  - BRADYCARDIA [None]
  - SHOCK [None]
